FAERS Safety Report 9397736 (Version 1)
Quarter: 2013Q3

REPORT INFORMATION
  Report Type: Spontaneous
  Country: DE (occurrence: DE)
  Receive Date: 20130712
  Receipt Date: 20130712
  Transmission Date: 20140515
  Serious: Yes (Other)
  Sender: FDA-Public Use
  Company Number: DE-TEVA-418087GER

PATIENT
  Age: 71 Year
  Sex: Female

DRUGS (1)
  1. DOXEPIN-RATIOPHARM 25 MG FILMTABLETTEN [Suspect]
     Route: 048

REACTIONS (1)
  - Glaucoma [Not Recovered/Not Resolved]
